FAERS Safety Report 5677901-X (Version None)
Quarter: 2008Q1

REPORT INFORMATION
  Report Type: 
  Country: None (occurrence: None)
  Receive Date: 20080319
  Receipt Date: 20080306
  Transmission Date: 20080703
  Serious: Yes (Other)
  Sender: FDA-Public Use
  Company Number: OPER20080045

PATIENT
  Sex: Female

DRUGS (1)
  1. OPANA [Suspect]
     Indication: BACK PAIN
     Dosage: 5 MG, PER ORAL
     Route: 048

REACTIONS (1)
  - INTENTIONAL DRUG MISUSE [None]
